APPROVED DRUG PRODUCT: MYCOPHENOLATE MOFETIL
Active Ingredient: MYCOPHENOLATE MOFETIL
Strength: 250MG
Dosage Form/Route: CAPSULE;ORAL
Application: A065433 | Product #001
Applicant: ZYDUS PHARMACEUTICALS USA INC
Approved: May 4, 2009 | RLD: No | RS: No | Type: DISCN